FAERS Safety Report 11447276 (Version 1)
Quarter: 2015Q3

REPORT INFORMATION
  Report Type: Spontaneous
  Country: US (occurrence: US)
  Receive Date: 20150831
  Receipt Date: 20150831
  Transmission Date: 20151125
  Serious: No
  Sender: FDA-Public Use
  Company Number: US-ELI_LILLY_AND_COMPANY-US200903002132

PATIENT
  Age: 27 Year
  Sex: Female

DRUGS (3)
  1. CONTRACEPTIVES NOS [Concomitant]
     Active Substance: UNSPECIFIED INGREDIENT
  2. CYMBALTA [Suspect]
     Active Substance: DULOXETINE HYDROCHLORIDE
     Indication: FATIGUE
     Dosage: 30 MG, DAILY (1/D)
     Dates: start: 20080218, end: 20090304
  3. ZOLOFT [Concomitant]
     Active Substance: SERTRALINE HYDROCHLORIDE

REACTIONS (3)
  - Pain in extremity [Recovered/Resolved]
  - Feeling abnormal [Recovered/Resolved]
  - Migraine [Recovered/Resolved]

NARRATIVE: CASE EVENT DATE: 200902
